FAERS Safety Report 5418203-6 (Version None)
Quarter: 2007Q3

REPORT INFORMATION
  Report Type: 
  Country: None (occurrence: None)
  Receive Date: 20070817
  Receipt Date: 20070813
  Transmission Date: 20080115
  Serious: Yes (Other)
  Sender: FDA-Public Use
  Company Number: PHNU2007DE00660

PATIENT
  Sex: Female

DRUGS (8)
  1. AREDIA [Suspect]
     Indication: METASTASES TO BONE
     Dosage: 75 MG, QMO
     Dates: start: 20040101, end: 20070101
  2. FEMARA [Concomitant]
     Indication: METASTASES TO BONE
     Dosage: 1 DF, QD
     Route: 048
     Dates: start: 20040101
  3. RAMIPRIL [Concomitant]
     Dosage: 5 MG, BID
     Route: 065
  4. PREDNISOLONE [Concomitant]
     Indication: OSTEOARTHRITIS
     Dosage: 5 MG, QD
     Route: 065
  5. AMLODIPINE [Concomitant]
     Route: 065
  6. LOCOL [Concomitant]
     Dosage: 80 MG, QD
     Route: 065
  7. NSAID'S [Concomitant]
     Route: 065
  8. ACEMETACIN [Concomitant]
     Dosage: 90 MG, BID
     Route: 065

REACTIONS (17)
  - ALBUMIN URINE PRESENT [None]
  - BIOPSY [None]
  - BIOPSY KIDNEY [None]
  - BLOOD CREATININE INCREASED [None]
  - BLOOD UREA INCREASED [None]
  - CREATINE URINE INCREASED [None]
  - CREATININE RENAL CLEARANCE DECREASED [None]
  - DRUG ABUSER [None]
  - GLOMERULONEPHRITIS [None]
  - HYPERTENSIVE NEPHROPATHY [None]
  - INFECTION [None]
  - NEPHROPATHY TOXIC [None]
  - NEPHROTIC SYNDROME [None]
  - PROTEINURIA [None]
  - PYREXIA [None]
  - RENAL FAILURE [None]
  - URINE PROTEIN/CREATININE RATIO INCREASED [None]
